FAERS Safety Report 6265714 (Version 14)
Quarter: 2013Q3

REPORT INFORMATION
  Report Type: Spontaneous
  Country: US (occurrence: US)
  Receive Date: 20070320
  Receipt Date: 20130701
  Transmission Date: 20140515
  Serious: Yes (Hospitalization, Other)
  Sender: FDA-Public Use
  Company Number: US-ROCHE-467351

PATIENT
  Age: 25 Year
  Sex: Male
  Weight: 86.2 kg

DRUGS (2)
  1. ACCUTANE [Suspect]
     Indication: ACNE CYSTIC
     Dosage: DOSAGE REGIMEN REPORTED AS 40-80 MG.
     Route: 048
     Dates: start: 19980515, end: 19980915
  2. PREDNISONE [Concomitant]
     Indication: DERMATITIS CONTACT
     Route: 048

REACTIONS (19)
  - Crohn^s disease [Unknown]
  - Sepsis [Unknown]
  - Ileal perforation [Unknown]
  - Inflammatory bowel disease [Unknown]
  - Crohn^s disease [Unknown]
  - Colitis ulcerative [Unknown]
  - Vitamin B12 deficiency [Not Recovered/Not Resolved]
  - Crohn^s disease [Unknown]
  - Haemorrhoids [Unknown]
  - Gastroenteritis viral [Unknown]
  - Peptic ulcer [Not Recovered/Not Resolved]
  - Gastrooesophageal reflux disease [Not Recovered/Not Resolved]
  - Post gastric surgery syndrome [Not Recovered/Not Resolved]
  - Gastroenteritis [Unknown]
  - Mood swings [Unknown]
  - Epistaxis [Unknown]
  - Lip pain [Unknown]
  - Dermatitis contact [Unknown]
  - Acne [Unknown]
